FAERS Safety Report 19006791 (Version 1)
Quarter: 2021Q1

REPORT INFORMATION
  Report Type: Spontaneous
  Country: US (occurrence: US)
  Receive Date: 20210312
  Receipt Date: 20210312
  Transmission Date: 20210420
  Serious: Yes (Other)
  Sender: FDA-Public Use
  Company Number: None

PATIENT
  Age: 55 Year
  Sex: Female
  Weight: 87.75 kg

DRUGS (2)
  1. RIZATRIPTAN. [Suspect]
     Active Substance: RIZATRIPTAN
  2. SUMATRIPTAN. [Suspect]
     Active Substance: SUMATRIPTAN

REACTIONS (2)
  - Hypoaesthesia [None]
  - Drug ineffective [None]

NARRATIVE: CASE EVENT DATE: 20210312
